FAERS Safety Report 6584962-2 (Version None)
Quarter: 2010Q1

REPORT INFORMATION
  Report Type: 
  Country: None (occurrence: None)
  Receive Date: 20100217
  Receipt Date: 20100208
  Transmission Date: 20100710
  Serious: Yes (Hospitalization, Other)
  Sender: FDA-Public Use
  Company Number: JP-BAYER-201010657BYL

PATIENT
  Age: 74 Year
  Sex: Male
  Weight: 82 kg

DRUGS (11)
  1. NEXAVAR [Suspect]
     Indication: HEPATIC NEOPLASM MALIGNANT
     Dosage: UNIT DOSE: 200 MG
     Route: 048
     Dates: start: 20090915
  2. NEXAVAR [Suspect]
     Dosage: UNIT DOSE: 200 MG
     Route: 048
     Dates: start: 20090902, end: 20090910
  3. NEXAVAR [Suspect]
     Dosage: UNIT DOSE: 200 MG
     Route: 048
     Dates: start: 20090821, end: 20090902
  4. DEPAS [Concomitant]
     Dosage: SINCE BEFORE ADMINISTRATION
     Route: 048
  5. LENDORMIN [Concomitant]
     Dosage: SINCE BEFORE ADMINISTRATION
     Route: 048
  6. TENORMIN [Concomitant]
     Dosage: SINCE BEFORE ADMINISTRATION
     Route: 048
  7. AMLODIPINE [Concomitant]
     Dosage: SINCE BEFORE ADMINISTRATION
     Route: 048
  8. GASTER [Concomitant]
     Dosage: SINCE BEFORE ADMINISTRATION
     Route: 048
  9. GASTROM [Concomitant]
     Dosage: SINCE BEFORE ADMINISTRATION
     Route: 048
  10. ASPIRIN [Concomitant]
     Dosage: UNIT DOSE: 100 MG
     Route: 048
  11. UREPEARL [Concomitant]
     Indication: PROPHYLAXIS
     Route: 061
     Dates: start: 20090820

REACTIONS (9)
  - ALOPECIA [None]
  - DECREASED APPETITE [None]
  - DYSPHONIA [None]
  - HEPATIC ENCEPHALOPATHY [None]
  - HYPOPHOSPHATAEMIA [None]
  - JAUNDICE [None]
  - LIPASE INCREASED [None]
  - PALMAR-PLANTAR ERYTHRODYSAESTHESIA SYNDROME [None]
  - RASH [None]
